FAERS Safety Report 7846921-9 (Version None)
Quarter: 2011Q4

REPORT INFORMATION
  Report Type: 
  Country: None (occurrence: None)
  Receive Date: 20111025
  Receipt Date: 20111020
  Transmission Date: 20120403
  Serious: Yes (Death)
  Sender: FDA-Public Use
  Company Number: US-CELGENEUS-163-21880-11083117

PATIENT
  Sex: Male

DRUGS (8)
  1. LOVENOX [Concomitant]
     Dosage: 40
     Route: 058
  2. SIROLIMUS [Concomitant]
  3. REVLIMID [Suspect]
     Dosage: 10 MILLIGRAM
     Route: 048
     Dates: start: 20110601
  4. REVLIMID [Suspect]
     Dosage: 25 MILLIGRAM
     Route: 048
     Dates: start: 20110705, end: 20110818
  5. SYNTHROID [Concomitant]
     Dosage: 50 MICROGRAM
     Route: 065
  6. HYDROCORTISONE [Concomitant]
  7. LOPRESSOR [Concomitant]
     Indication: HYPERTENSION
     Dosage: 12.5
     Route: 065
  8. ATROVENT [Concomitant]
     Indication: ASTHMA
     Dosage: 2 PUFFS
     Route: 055

REACTIONS (3)
  - SUDDEN DEATH [None]
  - INFECTION [None]
  - CARDIO-RESPIRATORY ARREST [None]
